FAERS Safety Report 6202351-7 (Version None)
Quarter: 2009Q2

REPORT INFORMATION
  Report Type: 
  Country: None (occurrence: None)
  Receive Date: 20090521
  Receipt Date: 20090521
  Transmission Date: 20091009
  Serious: Yes (Disabling)
  Sender: FDA-Public Use
  Company Number: None

PATIENT
  Sex: Female
  Weight: 70.3075 kg

DRUGS (1)
  1. RECLAST [Suspect]
     Indication: OSTEOPENIA
     Dosage: 5MG/100ML ONCE YEARLY IV
     Route: 042
     Dates: start: 20081030

REACTIONS (4)
  - CHILLS [None]
  - PAIN IN JAW [None]
  - TOOTH DISORDER [None]
  - TREMOR [None]
